FAERS Safety Report 7477163-7 (Version None)
Quarter: 2011Q2

REPORT INFORMATION
  Report Type: 
  Country: None (occurrence: None)
  Receive Date: 20110512
  Receipt Date: 20110428
  Transmission Date: 20111010
  Serious: Yes (Hospitalization, Other)
  Sender: FDA-Public Use
  Company Number: US-ELI_LILLY_AND_COMPANY-US201105000690

PATIENT
  Sex: Female

DRUGS (19)
  1. LOVENOX [Concomitant]
     Dosage: UNK, UNKNOWN
     Route: 065
  2. PAXIL [Concomitant]
     Dosage: UNK, UNKNOWN
     Route: 065
  3. JANUVIA [Concomitant]
     Dosage: UNK, UNKNOWN
     Route: 065
  4. NOVOLIN R [Concomitant]
     Dosage: UNK, UNKNOWN
     Route: 065
  5. GABAPENTIN [Concomitant]
     Dosage: UNK, UNKNOWN
     Route: 065
  6. VITAMIN D [Concomitant]
     Dosage: UNK, UNKNOWN
     Route: 065
  7. MULTI-VITAMIN [Concomitant]
     Dosage: UNK, UNKNOWN
     Route: 065
  8. MUPIROCIN [Concomitant]
     Dosage: UNK, UNKNOWN
     Route: 065
  9. LEVETIRACETAM [Concomitant]
     Dosage: UNK, UNKNOWN
     Route: 065
  10. LISINOPRIL [Concomitant]
     Dosage: UNK, UNKNOWN
     Route: 065
  11. BACTRIM [Concomitant]
     Dosage: UNK, UNKNOWN
     Route: 065
  12. POTASSIUM CHLORIDE [Concomitant]
     Dosage: UNK, UNKNOWN
     Route: 065
  13. OMEPRAZOLE [Concomitant]
     Dosage: UNK, UNKNOWN
     Route: 065
  14. HYDROMORPHONE HCL [Concomitant]
     Dosage: UNK, UNKNOWN
     Route: 065
  15. SIMVASTATIN [Concomitant]
     Dosage: UNK, UNKNOWN
     Route: 065
  16. FORTEO [Suspect]
     Indication: OSTEOPOROSIS
     Dosage: 20 UG, QD
     Route: 065
     Dates: start: 20110201
  17. ASPIRIN [Concomitant]
     Dosage: UNK, UNKNOWN
     Route: 065
  18. FOLIC ACID [Concomitant]
     Dosage: UNK, UNKNOWN
     Route: 065
  19. TRAZODONE HCL [Concomitant]
     Dosage: UNK, UNKNOWN
     Route: 065

REACTIONS (5)
  - NEPHROLITHIASIS [None]
  - FLANK PAIN [None]
  - HAEMORRHAGE [None]
  - KIDNEY INFECTION [None]
  - PAIN [None]
